FAERS Safety Report 9378376 (Version 3)
Quarter: 2013Q3

REPORT INFORMATION
  Report Type: Spontaneous
  Country: US (occurrence: US)
  Receive Date: 20130701
  Receipt Date: 20130909
  Transmission Date: 20140515
  Serious: No
  Sender: FDA-Public Use
  Company Number: US-PFIZER INC-2013194414

PATIENT
  Age: 57 Year
  Sex: Male
  Weight: 72.56 kg

DRUGS (5)
  1. LIPITOR [Suspect]
     Indication: BLOOD CHOLESTEROL INCREASED
     Dosage: 20 MG, DAILY
     Dates: end: 201306
  2. LIBRIUM [Concomitant]
     Dosage: UNK, AS NEEDED
  3. AMLODIPINE [Concomitant]
     Dosage: 5 MG, 1X/DAY
  4. HCTZ [Concomitant]
     Dosage: 12.5 MG, 2X/DAY
  5. ZETIA [Concomitant]
     Dosage: 10 MG, 1X/DAY

REACTIONS (1)
  - Pain in extremity [Unknown]
